FAERS Safety Report 7440961-X (Version None)
Quarter: 2011Q2

REPORT INFORMATION
  Report Type: 
  Country: None (occurrence: None)
  Receive Date: 20110427
  Receipt Date: 20110426
  Transmission Date: 20111010
  Serious: Yes (Death, Other)
  Sender: FDA-Public Use
  Company Number: JP-PFIZER INC-2011089103

PATIENT
  Age: 57 Year
  Sex: Female

DRUGS (10)
  1. VINCRISTINE [Suspect]
     Indication: MYCOSIS FUNGOIDES
     Dosage: UNK
  2. PREDNISOLONE [Suspect]
     Indication: MYCOSIS FUNGOIDES
     Dosage: UNK
  3. ETOPOSIDE [Suspect]
     Indication: MYCOSIS FUNGOIDES
     Dosage: UNK
  4. CYCLOPHOSPHAMIDE [Suspect]
     Indication: MYCOSIS FUNGOIDES
     Dosage: UNK
  5. MITOXANTRONE HYDROCHLORIDE [Suspect]
     Indication: MYCOSIS FUNGOIDES
     Dosage: UNK
  6. METHOTREXATE SODIUM [Suspect]
     Indication: MYCOSIS FUNGOIDES
     Dosage: 25 MG, WEEKLY
  7. CYTARABINE [Suspect]
     Indication: MYCOSIS FUNGOIDES
     Dosage: UNK
  8. PLATOSIN [Suspect]
     Indication: MYCOSIS FUNGOIDES
     Dosage: UNK
  9. ADRIAMYCIN PFS [Suspect]
     Indication: MYCOSIS FUNGOIDES
     Dosage: UNK
  10. METHYLPREDNISOLONE SODIUM SUCCINATE [Suspect]
     Dosage: UNK

REACTIONS (2)
  - PNEUMONIA [None]
  - BONE MARROW FAILURE [None]
